FAERS Safety Report 8883344 (Version 2)
Quarter: 2012Q4

REPORT INFORMATION
  Report Type: 
  Country: BE (occurrence: BE)
  Receive Date: 20121102
  Receipt Date: 20121115
  Transmission Date: 20130627
  Serious: Yes (Other)
  Sender: FDA-Public Use
  Company Number: BE-BAXTER-2012BAX010593

PATIENT
  Age: 36 Year
  Sex: Male

DRUGS (4)
  1. EXTRANEAL [Suspect]
     Indication: END STAGE RENAL DISEASE (ESRD)
     Route: 033
     Dates: start: 20120530, end: 201206
  2. EXTRANEAL [Suspect]
     Indication: POLYCYSTIC KIDNEY
     Route: 033
  3. PHYSIONEAL 35 GLUCOSE 1,36% P/V/ 13,6 MG/ML [Suspect]
     Indication: END STAGE RENAL DISEASE (ESRD)
     Route: 033
     Dates: start: 20120530, end: 201206
  4. PHYSIONEAL 35 GLUCOSE 1,36% P/V/ 13,6 MG/ML [Suspect]
     Indication: POLYCYSTIC KIDNEY
     Route: 033

REACTIONS (3)
  - Procedural pain [Not Recovered/Not Resolved]
  - Discomfort [Unknown]
  - Umbilical hernia [Recovered/Resolved]
